FAERS Safety Report 24662576 (Version 1)
Quarter: 2024Q4

REPORT INFORMATION
  Report Type: Report from Study
  Country: DE (occurrence: DE)
  Receive Date: 20241126
  Receipt Date: 20241126
  Transmission Date: 20250115
  Serious: Yes (Hospitalization)
  Sender: ABBVIE
  Company Number: DE-ABBVIE-6017663

PATIENT
  Sex: Female

DRUGS (2)
  1. CARBIDOPA\LEVODOPA [Suspect]
     Active Substance: CARBIDOPA\LEVODOPA
     Indication: Parkinson^s disease
     Dosage: MD 7.7 ML; CRD 2.3 ML/H; ED 1.8 ML
     Route: 050
     Dates: start: 20211118
  2. CARBIDOPA\LEVODOPA [Suspect]
     Active Substance: CARBIDOPA\LEVODOPA

REACTIONS (4)
  - Weight decreased [Unknown]
  - Overdose [Unknown]
  - Restlessness [Unknown]
  - Agitation [Unknown]

NARRATIVE: CASE EVENT DATE: 20240101
